FAERS Safety Report 11189968 (Version 4)
Quarter: 2015Q4

REPORT INFORMATION
  Report Type: Spontaneous
  Country: US (occurrence: US)
  Receive Date: 20150615
  Receipt Date: 20151209
  Transmission Date: 20160304
  Serious: No
  Sender: FDA-Public Use
  Company Number: US-PFIZER INC-2015195675

PATIENT
  Age: 82 Year
  Sex: Female
  Weight: 54 kg

DRUGS (2)
  1. VIROPTIC [Suspect]
     Active Substance: TRIFLURIDINE
     Dosage: UNK (ONE DROP TO LEFT EYE NINE TIMES A DAY)
     Route: 047
     Dates: end: 20151121
  2. VIROPTIC [Suspect]
     Active Substance: TRIFLURIDINE
     Indication: HERPES OPHTHALMIC
     Dosage: 6 TO 9 DROPS A DAY TO START FOR 1 WK THEN LESS EACH WEEK
     Route: 047

REACTIONS (19)
  - Extra dose administered [Unknown]
  - Hypersensitivity [Unknown]
  - Eye pain [Unknown]
  - Diarrhoea [Unknown]
  - Feeling abnormal [Unknown]
  - Hypoaesthesia [Unknown]
  - Peripheral swelling [Not Recovered/Not Resolved]
  - Eating disorder [Unknown]
  - Intentional product use issue [Not Recovered/Not Resolved]
  - Eye pain [Unknown]
  - Incorrect drug administration duration [Unknown]
  - Herpes virus infection [Not Recovered/Not Resolved]
  - Eye injury [Unknown]
  - Drug intolerance [Recovered/Resolved]
  - Malaise [Unknown]
  - Drug ineffective [Unknown]
  - Pain [Unknown]
  - Product container issue [Unknown]
  - Circumstance or information capable of leading to medication error [Unknown]

NARRATIVE: CASE EVENT DATE: 201511
